FAERS Safety Report 12892957 (Version 1)
Quarter: 2016Q4

REPORT INFORMATION
  Report Type: Spontaneous
  Country: US (occurrence: US)
  Receive Date: 20161028
  Receipt Date: 20161028
  Transmission Date: 20170207
  Serious: No
  Sender: FDA-Public Use
  Company Number: US-BAYER-2016-205510

PATIENT

DRUGS (1)
  1. CIPRO [Suspect]
     Active Substance: CIPROFLOXACIN HYDROCHLORIDE
     Dosage: UNK
     Dates: start: 2015

REACTIONS (6)
  - Unevaluable event [None]
  - Insomnia [None]
  - Malaise [None]
  - Fatigue [None]
  - Anxiety [None]
  - Hypoaesthesia [None]
